FAERS Safety Report 18600290 (Version 1)
Quarter: 2020Q4

REPORT INFORMATION
  Report Type: Spontaneous
  Country: US (occurrence: US)
  Receive Date: 20201210
  Receipt Date: 20201210
  Transmission Date: 20210114
  Serious: No
  Sender: FDA-Public Use
  Company Number: None

PATIENT
  Age: 64 Year
  Sex: Female
  Weight: 83.7 kg

DRUGS (13)
  1. GABAPENTIN 300MG [Concomitant]
     Active Substance: GABAPENTIN
     Dates: start: 20190121
  2. NOVOLOG [Concomitant]
     Active Substance: INSULIN ASPART
     Dates: start: 20190918
  3. GLIPIZIDE 10MG [Concomitant]
     Active Substance: GLIPIZIDE
     Dates: start: 20190918
  4. MYCOPHENOLATE MOFETIL 500MG [Concomitant]
     Active Substance: MYCOPHENOLATE MOFETIL
     Dates: start: 20190920
  5. PIOGLITAZONE. [Suspect]
     Active Substance: PIOGLITAZONE
     Dates: start: 20190918, end: 20200304
  6. METFORMIN [Concomitant]
     Active Substance: METFORMIN HYDROCHLORIDE
     Dates: start: 20191022
  7. AMLODIPINE [Concomitant]
     Active Substance: AMLODIPINE BESYLATE
     Dates: start: 20191022
  8. CYCLOBENZAPRINE 5 MG [Concomitant]
     Active Substance: CYCLOBENZAPRINE HYDROCHLORIDE
     Dates: start: 20191022
  9. LISINOPRIL. [Concomitant]
     Active Substance: LISINOPRIL
     Dates: start: 20190918
  10. HYDROXYCHLOROQUINE 200 MG [Concomitant]
     Active Substance: HYDROXYCHLOROQUINE
     Dates: start: 20190918
  11. LEVEMIR [Concomitant]
     Active Substance: INSULIN DETEMIR
     Dates: start: 20200304
  12. MELOXICAM 15MG [Concomitant]
     Active Substance: MELOXICAM
     Dates: start: 20191022
  13. METOPROLOL ER 100MG [Concomitant]
     Dates: start: 20190918

REACTIONS (1)
  - Peripheral swelling [None]

NARRATIVE: CASE EVENT DATE: 20200304
